FAERS Safety Report 21544534 (Version 1)
Quarter: 2022Q4

REPORT INFORMATION
  Report Type: Report from Study
  Country: LV (occurrence: LV)
  Receive Date: 20221102
  Receipt Date: 20221102
  Transmission Date: 20230113
  Serious: Yes (Death, Other)
  Sender: FDA-Public Use
  Company Number: LV-BoehringerIngelheim-2022-BI-200301

PATIENT

DRUGS (1)
  1. IDARUCIZUMAB [Suspect]
     Active Substance: IDARUCIZUMAB
     Indication: Procoagulant therapy
     Dosage: BOLUS
     Route: 042

REACTIONS (1)
  - Haemorrhage intracranial [Fatal]
